FAERS Safety Report 6439162-3 (Version None)
Quarter: 2009Q4

REPORT INFORMATION
  Report Type: 
  Country: None (occurrence: None)
  Receive Date: 20091113
  Receipt Date: 20091102
  Transmission Date: 20100525
  Serious: Yes (Death)
  Sender: FDA-Public Use
  Company Number: FR-PFIZER INC-2009294339

PATIENT
  Age: 24 Year
  Sex: Male

DRUGS (4)
  1. ATARAX [Suspect]
     Dosage: UNK
     Dates: end: 20090709
  2. SUBUTEX [Suspect]
     Dosage: UNK
     Dates: end: 20090709
  3. NORDAZEPAM [Suspect]
     Dosage: UNK
     Dates: end: 20090709
  4. VENLAFAXINE [Suspect]
     Dosage: UNK
     Dates: end: 20090709

REACTIONS (2)
  - DEATH [None]
  - OVERDOSE [None]
